FAERS Safety Report 15265287 (Version 1)
Quarter: 2018Q3

REPORT INFORMATION
  Report Type: Spontaneous
  Country: US (occurrence: US)
  Receive Date: 20180723
  Receipt Date: 20180723
  Transmission Date: 20181010
  Serious: No
  Sender: FDA-Public Use
  Company Number: None

PATIENT
  Age: 55 Year
  Sex: Male
  Weight: 89.1 kg

DRUGS (2)
  1. CAPECITABINE. [Suspect]
     Active Substance: CAPECITABINE
     Indication: COLON CANCER
     Route: 048
     Dates: start: 20180502
  2. CAPECITABINE 500MG [Concomitant]
     Active Substance: CAPECITABINE

REACTIONS (1)
  - Hypoaesthesia oral [None]

NARRATIVE: CASE EVENT DATE: 20180723
